FAERS Safety Report 9738717 (Version 2)
Quarter: 2014Q1

REPORT INFORMATION
  Report Type: Spontaneous
  Country: DK (occurrence: DK)
  Receive Date: 20131209
  Receipt Date: 20140211
  Transmission Date: 20141002
  Serious: Yes (Hospitalization)
  Sender: FDA-Public Use
  Company Number: DK-ROCHE-1314796

PATIENT
  Age: 16 Year
  Sex: Male
  Weight: 44 kg

DRUGS (2)
  1. ROACTEMRA [Suspect]
     Indication: JUVENILE IDIOPATHIC ARTHRITIS
     Dosage: DOSE: 360 MG (8MG/KG) OVER 1 TIME?STRENGHT: 20 MG/ML
     Route: 042
     Dates: start: 20131125
  2. PREDNISOLON [Concomitant]
     Indication: JUVENILE IDIOPATHIC ARTHRITIS
     Route: 048
     Dates: start: 201311, end: 20131127

REACTIONS (2)
  - Headache [Recovered/Resolved]
  - Photophobia [Recovered/Resolved]
